FAERS Safety Report 8968043 (Version 1)
Quarter: 2012Q4

REPORT INFORMATION
  Report Type: 
  Country: AE (occurrence: US)
  Receive Date: 20121217
  Receipt Date: 20121217
  Transmission Date: 20130627
  Serious: Yes (Hospitalization)
  Sender: FDA-Public Use
  Company Number: US-ASTRAZENECA-2012SE92118

PATIENT
  Age: 61 Year
  Sex: Female
  Weight: 86.2 kg

DRUGS (1)
  1. ATENOLOL [Suspect]
     Indication: BLOOD PRESSURE ABNORMAL
     Dosage: possibly 50 mg per day
     Route: 048

REACTIONS (3)
  - Intestinal haemorrhage [Recovered/Resolved]
  - Blood pressure increased [Unknown]
  - Intentional drug misuse [Unknown]
